FAERS Safety Report 4966955-1 (Version None)
Quarter: 2006Q2

REPORT INFORMATION
  Report Type: 
  Country: None (occurrence: None)
  Receive Date: 20060403
  Receipt Date: 20060321
  Transmission Date: 20061013
  Serious: Yes (Life-Threatening)
  Sender: FDA-Public Use
  Company Number: 06H-163-0306808-00

PATIENT
  Age: 10 Month
  Sex: Female
  Weight: 7.5 kg

DRUGS (6)
  1. MAGNESIUM SULFATE INJECTION (MAGNESIUM SULFATE) (MAGNESIUM SULFATE) [Suspect]
     Indication: ELECTROLYTE SUBSTITUTION THERAPY
     Dosage: INTRAVENOUS
     Route: 042
  2. BLEOMYCIN [Concomitant]
  3. ETOPOSIDE [Concomitant]
  4. CISPLATIN [Concomitant]
  5. MANNITOL [Concomitant]
  6. SODIUM PHOSPHATES [Concomitant]

REACTIONS (6)
  - ACCIDENTAL OVERDOSE [None]
  - CARDIO-RESPIRATORY ARREST [None]
  - COMA [None]
  - DRUG ADMINISTRATION ERROR [None]
  - HAEMODIALYSIS [None]
  - HYPERMAGNESAEMIA [None]
